FAERS Safety Report 20203453 (Version 2)
Quarter: 2021Q4

REPORT INFORMATION
  Report Type: Report from Study
  Country: NL (occurrence: NL)
  Receive Date: 20211218
  Receipt Date: 20211224
  Transmission Date: 20220303
  Serious: Yes (Death, Hospitalization)
  Sender: FDA-Public Use
  Company Number: NL-SERVIER-S21013819

PATIENT

DRUGS (5)
  1. IVOSIDENIB [Suspect]
     Active Substance: IVOSIDENIB
     Indication: Acute myeloid leukaemia
     Dates: start: 20210703, end: 20210818
  2. CYTARABINE [Suspect]
     Active Substance: CYTARABINE
     Indication: Acute myeloid leukaemia
     Dosage: 3900 MG, UNK
     Route: 065
     Dates: start: 20210722, end: 20210728
  3. TN UNSPECIFIED [Concomitant]
     Indication: Product used for unknown indication
     Dosage: 10 MG, UNK
     Route: 065
     Dates: start: 20210712
  4. TN UNSPECIFIED [Concomitant]
     Indication: Product used for unknown indication
     Dosage: 40 MG, UNK
     Route: 065
     Dates: start: 20210725
  5. TN UNSPECIFIED [Concomitant]
     Indication: Product used for unknown indication
     Dosage: 14 MG/24HR, UNK
     Route: 065
     Dates: start: 20210727

REACTIONS (1)
  - Systemic candida [Fatal]

NARRATIVE: CASE EVENT DATE: 20210806
